FAERS Safety Report 22605650 (Version 1)
Quarter: 2023Q2

REPORT INFORMATION
  Report Type: Spontaneous
  Country: US (occurrence: US)
  Receive Date: 20230615
  Receipt Date: 20230615
  Transmission Date: 20230721
  Serious: Yes (Death, Other)
  Sender: FDA-Public Use
  Company Number: US-PFIZER INC-2019207949

PATIENT
  Age: 65 Year
  Sex: Female

DRUGS (1)
  1. CHANTIX [Suspect]
     Active Substance: VARENICLINE TARTRATE
     Indication: Smoking cessation therapy
     Dosage: 1 DF, 2X/DAY (STRENGTH: 0.5-1 MG)
     Route: 048

REACTIONS (3)
  - Brain neoplasm malignant [Fatal]
  - Off label use [Unknown]
  - Product use issue [Unknown]
